FAERS Safety Report 25198820 (Version 3)
Quarter: 2025Q2

REPORT INFORMATION
  Report Type: Report from Study
  Country: US (occurrence: US)
  Receive Date: 20250415
  Receipt Date: 20250618
  Transmission Date: 20250717
  Serious: No
  Sender: SUNOVION
  Company Number: US-SUMITOMO PHARMA SWITZERLAND GMBH-2025SPA003712

PATIENT

DRUGS (6)
  1. ORGOVYX [Suspect]
     Active Substance: RELUGOLIX
     Indication: Prostate cancer
     Route: 048
  2. ORGOVYX [Suspect]
     Active Substance: RELUGOLIX
     Dosage: 120 MG, QD
     Route: 048
  3. ATORVASTATIN [Concomitant]
     Active Substance: ATORVASTATIN
     Route: 065
  4. MAGNESIUM [Concomitant]
     Active Substance: MAGNESIUM
     Route: 065
  5. Phillips fiber gummies [Concomitant]
     Route: 065
  6. VITAMINS [Concomitant]
     Active Substance: VITAMINS
     Route: 065

REACTIONS (6)
  - Joint swelling [Unknown]
  - Night sweats [Unknown]
  - Arthralgia [Unknown]
  - Hot flush [Unknown]
  - Arthritis [Unknown]
  - Insomnia [Unknown]
